FAERS Safety Report 4372279-6 (Version None)
Quarter: 2004Q2

REPORT INFORMATION
  Report Type: 
  Country: None (occurrence: None)
  Receive Date: 20040602
  Receipt Date: 20040518
  Transmission Date: 20050107
  Serious: Yes (Hospitalization)
  Sender: FDA-Public Use
  Company Number: 2004203767ES

PATIENT
  Age: 58 Year
  Sex: Male

DRUGS (5)
  1. XALATAN [Suspect]
     Indication: GLAUCOMA
     Dosage: 1 GTT, QD, OPHTHALMIC
     Route: 047
     Dates: start: 20040101, end: 20040201
  2. VERNIES [Concomitant]
  3. UNIKET [Concomitant]
  4. AUGMENTIN ORAL [Concomitant]
  5. EPROSARTAN (EPROSARTAN) [Concomitant]

REACTIONS (14)
  - ARTERIOSPASM CORONARY [None]
  - ARTHRALGIA [None]
  - ATRIOVENTRICULAR BLOCK [None]
  - BLOOD CREATINE PHOSPHOKINASE INCREASED [None]
  - CARDIAC ARREST [None]
  - CARDIOPULMONARY FAILURE [None]
  - CONDITION AGGRAVATED [None]
  - CONDUCTION DISORDER [None]
  - LOSS OF CONSCIOUSNESS [None]
  - PRINZMETAL ANGINA [None]
  - RESPIRATORY ARREST [None]
  - TROPONIN T INCREASED [None]
  - VENTRICULAR FIBRILLATION [None]
  - VENTRICULAR TACHYCARDIA [None]
